FAERS Safety Report 11057630 (Version 2)
Quarter: 2015Q3

REPORT INFORMATION
  Report Type: Spontaneous
  Country: CA (occurrence: CA)
  Receive Date: 20150423
  Receipt Date: 20150728
  Transmission Date: 20151125
  Serious: Yes (Hospitalization)
  Sender: FDA-Public Use
  Company Number: CA-ROCHE-1566300

PATIENT
  Age: 73 Year
  Sex: Male

DRUGS (19)
  1. CHLORAMBUCIL [Suspect]
     Active Substance: CHLORAMBUCIL
     Dosage: FREQUENCY: 1 DAY
     Route: 048
  2. MONTELUKAST [Concomitant]
     Active Substance: MONTELUKAST SODIUM
  3. ROSUVASTATIN [Concomitant]
     Active Substance: ROSUVASTATIN
     Route: 065
  4. TYLENOL [Concomitant]
     Active Substance: ACETAMINOPHEN
  5. RANITIDINE [Concomitant]
     Active Substance: RANITIDINE\RANITIDINE HYDROCHLORIDE
     Route: 065
  6. BENADRYL [Concomitant]
     Active Substance: DIPHENHYDRAMINE HYDROCHLORIDE
  7. CETIRIZINE [Concomitant]
     Active Substance: CETIRIZINE HYDROCHLORIDE
  8. DEXAMETHASONE. [Concomitant]
     Active Substance: DEXAMETHASONE
  9. GAZYVA [Suspect]
     Active Substance: OBINUTUZUMAB
     Dosage: THERAPY DURATION: 1 DAY
     Route: 041
  10. GAZYVA [Suspect]
     Active Substance: OBINUTUZUMAB
     Dosage: THERAPY DURATION: 1 DAY
     Route: 041
  11. LOSEC [Concomitant]
     Active Substance: OMEPRAZOLE
     Route: 065
  12. METOCLOPRAMIDE. [Concomitant]
     Active Substance: METOCLOPRAMIDE
  13. NORMAL SALINE [Concomitant]
     Active Substance: SODIUM CHLORIDE
  14. ALLOPURINOL. [Concomitant]
     Active Substance: ALLOPURINOL
     Route: 065
  15. MYRBETRIQ [Concomitant]
     Active Substance: MIRABEGRON
     Route: 065
  16. CHLORAMBUCIL [Suspect]
     Active Substance: CHLORAMBUCIL
     Indication: CHRONIC LYMPHOCYTIC LEUKAEMIA
     Dosage: FREQUENCY: ONCE?SIX THERAPIES
     Route: 048
  17. GAZYVA [Suspect]
     Active Substance: OBINUTUZUMAB
     Indication: CHRONIC LYMPHOCYTIC LEUKAEMIA
     Dosage: THERAPY DURATION: 1 DAY (SEVEN THERAPIES)
     Route: 041
  18. CYCLOPHOSPHAMIDE. [Suspect]
     Active Substance: CYCLOPHOSPHAMIDE
     Indication: CHRONIC LYMPHOCYTIC LEUKAEMIA
     Dosage: THERAPY DURATION: 1 DAY
     Route: 048
  19. ASPIRIN. [Concomitant]
     Active Substance: ASPIRIN

REACTIONS (1)
  - Pneumonia [Recovered/Resolved]
